FAERS Safety Report 11217399 (Version 1)
Quarter: 2015Q2

REPORT INFORMATION
  Report Type: Spontaneous
  Country: US (occurrence: US)
  Receive Date: 20150625
  Receipt Date: 20150625
  Transmission Date: 20150821
  Serious: No
  Sender: FDA-Public Use
  Company Number: US-009507513-1506USA011276

PATIENT
  Age: 29 Year
  Sex: Female
  Weight: 83.45 kg

DRUGS (1)
  1. NEXPLANON [Suspect]
     Active Substance: ETONOGESTREL
     Indication: CONTRACEPTION
     Dosage: EVERY 3 YEARS
     Dates: start: 20150518

REACTIONS (4)
  - Anxiety [Unknown]
  - Menorrhagia [Not Recovered/Not Resolved]
  - Nervousness [Unknown]
  - Nausea [Unknown]

NARRATIVE: CASE EVENT DATE: 201505
